FAERS Safety Report 9256328 (Version 1)
Quarter: 2013Q2

REPORT INFORMATION
  Report Type: Spontaneous
  Country: US (occurrence: US)
  Receive Date: 20130425
  Receipt Date: 20130425
  Transmission Date: 20140414
  Serious: No
  Sender: FDA-Public Use
  Company Number: US-AMGEN-USASP2012080238

PATIENT
  Age: 48 Year
  Sex: Female

DRUGS (3)
  1. NEULASTA [Suspect]
     Indication: PRODUCT USED FOR UNKNOWN INDICATION
     Dosage: UNK
  2. CYTOXAN [Concomitant]
     Indication: BREAST CANCER
     Dosage: UNK
  3. ADRIAMYCIN                         /00330901/ [Concomitant]
     Indication: BREAST CANCER
     Dosage: UNK

REACTIONS (4)
  - Bone pain [Recovered/Resolved]
  - Arthralgia [Not Recovered/Not Resolved]
  - Arthritis [Unknown]
  - Pain [Recovered/Resolved]
